FAERS Safety Report 25659080 (Version 1)
Quarter: 2025Q3

REPORT INFORMATION
  Report Type: Spontaneous
  Country: EU (occurrence: EU)
  Receive Date: 20250808
  Receipt Date: 20250808
  Transmission Date: 20251020
  Serious: Yes (Other)
  Sender: STRIDES
  Company Number: EU-STRIDES ARCOLAB LIMITED-2025SP009871

PATIENT
  Age: 52 Year
  Sex: Female

DRUGS (13)
  1. METHOTREXATE [Suspect]
     Active Substance: METHOTREXATE
     Indication: Systemic lupus erythematosus
     Route: 065
     Dates: start: 2019
  2. METHOTREXATE [Suspect]
     Active Substance: METHOTREXATE
     Indication: Sjogren^s syndrome
  3. METHOTREXATE [Suspect]
     Active Substance: METHOTREXATE
     Indication: Raynaud^s phenomenon
  4. AMITRIPTYLINE [Suspect]
     Active Substance: AMITRIPTYLINE
     Indication: Headache
     Route: 065
  5. HYDROXYCHLOROQUINE [Suspect]
     Active Substance: HYDROXYCHLOROQUINE
     Indication: Systemic lupus erythematosus
     Route: 065
  6. HYDROXYCHLOROQUINE [Suspect]
     Active Substance: HYDROXYCHLOROQUINE
     Indication: Sjogren^s syndrome
  7. HYDROXYCHLOROQUINE [Suspect]
     Active Substance: HYDROXYCHLOROQUINE
     Indication: Raynaud^s phenomenon
  8. BELIMUMAB [Suspect]
     Active Substance: BELIMUMAB
     Indication: Systemic lupus erythematosus
     Route: 065
     Dates: start: 2018
  9. BELIMUMAB [Suspect]
     Active Substance: BELIMUMAB
     Indication: Raynaud^s phenomenon
  10. BELIMUMAB [Suspect]
     Active Substance: BELIMUMAB
     Indication: Sjogren^s syndrome
  11. FLUNARIZINE [Suspect]
     Active Substance: FLUNARIZINE
     Indication: Systemic lupus erythematosus
     Route: 065
  12. FLUNARIZINE [Suspect]
     Active Substance: FLUNARIZINE
     Indication: Raynaud^s phenomenon
  13. FLUNARIZINE [Suspect]
     Active Substance: FLUNARIZINE
     Indication: Sjogren^s syndrome

REACTIONS (4)
  - Condition aggravated [Unknown]
  - Drug ineffective for unapproved indication [Unknown]
  - Therapy non-responder [Unknown]
  - Off label use [Unknown]
